FAERS Safety Report 9514619 (Version 2)
Quarter: 2013Q3

REPORT INFORMATION
  Report Type: Spontaneous
  Country: GB (occurrence: None)
  Receive Date: 20130906
  Receipt Date: 20130916
  Transmission Date: 20140515
  Serious: Yes (Other)
  Sender: FDA-Public Use
  Company Number: AUR-APL-2013-07497

PATIENT
  Age: 51 Year
  Sex: Female

DRUGS (3)
  1. RIBAVIRIN [Suspect]
     Indication: HEPATITIS C
     Route: 048
     Dates: start: 201205
  2. INTERFERON ALFA-2A [Suspect]
     Indication: HEPATITIS C
     Route: 058
     Dates: start: 201205
  3. TELAPREVIR [Suspect]
     Indication: HEPATITIS C
     Dosage: 2250 MG (750 MG, 3 IN 1 D)
     Route: 048
     Dates: start: 20120721

REACTIONS (22)
  - Nausea [None]
  - Vomiting [None]
  - Rash generalised [None]
  - Diarrhoea [None]
  - Dry skin [None]
  - Abdominal pain upper [None]
  - Abdominal pain upper [None]
  - Swelling face [None]
  - Local swelling [None]
  - Hallucination, olfactory [None]
  - Thirst [None]
  - Pruritus [None]
  - Disturbance in attention [None]
  - Skin papilloma [None]
  - Amnesia [None]
  - Influenza like illness [None]
  - Cough [None]
  - Pain [None]
  - Dyspepsia [None]
  - Rectal haemorrhage [None]
  - Gastrooesophageal reflux disease [None]
  - Neuropathy peripheral [None]
